FAERS Safety Report 25428369 (Version 1)
Quarter: 2025Q2

REPORT INFORMATION
  Report Type: Spontaneous
  Country: IT (occurrence: IT)
  Receive Date: 20250612
  Receipt Date: 20250612
  Transmission Date: 20250716
  Serious: Yes (Life-Threatening, Hospitalization, Other)
  Sender: AUROBINDO
  Company Number: IT-STADA-01399042

PATIENT
  Age: 76 Year
  Sex: Male
  Weight: 89 kg

DRUGS (24)
  1. DOXORUBICIN [Suspect]
     Active Substance: DOXORUBICIN
     Indication: Neoplasm malignant
     Route: 065
     Dates: start: 20221107, end: 20221107
  2. LENALIDOMIDE [Suspect]
     Active Substance: LENALIDOMIDE
     Indication: Neoplasm malignant
     Route: 065
     Dates: start: 20221107
  3. LENALIDOMIDE [Suspect]
     Active Substance: LENALIDOMIDE
     Dosage: 25 MILLIGRAM, ONCE A DAY, 25 MG, 1X PER DAY
     Route: 048
     Dates: start: 20221107, end: 20221116
  4. CYCLOPHOSPHAMIDE [Suspect]
     Active Substance: CYCLOPHOSPHAMIDE
     Indication: Neoplasm malignant
     Route: 042
     Dates: start: 20221107, end: 20221107
  5. FENTANYL [Suspect]
     Active Substance: FENTANYL
     Indication: Product used for unknown indication
     Route: 065
     Dates: start: 20221107
  6. PREDNISOLONE [Suspect]
     Active Substance: PREDNISOLONE
     Indication: Neoplasm malignant
     Dosage: 100 MILLIGRAM, ONCE A DAY,100 MG, 1X PER DAY
     Route: 048
     Dates: start: 20221107, end: 20221107
  7. RITUXIMAB [Suspect]
     Active Substance: RITUXIMAB
     Indication: Neoplasm malignant
     Route: 042
     Dates: start: 20221107
  8. TAFASITAMAB [Suspect]
     Active Substance: TAFASITAMAB
     Indication: Neoplasm malignant
     Route: 042
     Dates: start: 20221107, end: 20221122
  9. TAFASITAMAB [Suspect]
     Active Substance: TAFASITAMAB
     Route: 065
     Dates: start: 20221129
  10. SULFAMETHOXAZOLE\TRIMETHOPRIM [Suspect]
     Active Substance: SULFAMETHOXAZOLE\TRIMETHOPRIM
     Indication: Product used for unknown indication
     Route: 065
     Dates: start: 20221107
  11. VINCRISTINE [Suspect]
     Active Substance: VINCRISTINE
     Indication: Neoplasm malignant
     Route: 065
     Dates: start: 20221107, end: 20221107
  12. ACYCLOVIR [Concomitant]
     Active Substance: ACYCLOVIR
     Indication: Product used for unknown indication
     Route: 065
     Dates: start: 20221107
  13. ALLOPURINOL [Concomitant]
     Active Substance: ALLOPURINOL
     Indication: Product used for unknown indication
     Route: 065
     Dates: start: 20221102
  14. CYCLOPHOSPHAMIDE [Concomitant]
     Active Substance: CYCLOPHOSPHAMIDE
     Indication: Diffuse large B-cell lymphoma
     Route: 042
     Dates: start: 20221107
  15. DOXORUBICIN [Concomitant]
     Active Substance: DOXORUBICIN
     Indication: Neoplasm malignant
     Route: 042
     Dates: start: 20221107
  16. ERYTHROPOIETIN [Concomitant]
     Active Substance: ERYTHROPOIETIN
     Indication: Product used for unknown indication
     Route: 065
     Dates: start: 20221107
  17. ENOXAPARIN [Concomitant]
     Active Substance: ENOXAPARIN
     Indication: Product used for unknown indication
     Route: 065
     Dates: start: 20221107
  18. FENTANYL [Concomitant]
     Active Substance: FENTANYL
     Indication: Product used for unknown indication
     Route: 065
     Dates: start: 20221107
  19. OMEPRAZOLE [Concomitant]
     Active Substance: OMEPRAZOLE
     Indication: Product used for unknown indication
     Route: 065
     Dates: start: 20221102
  20. PREDNISOLONE [Concomitant]
     Active Substance: PREDNISOLONE
     Indication: Neoplasm malignant
     Dosage: 100 MILLIGRAM, ONCE A DAY
     Route: 048
     Dates: start: 20221107
  21. RITUXIMAB [Concomitant]
     Active Substance: RITUXIMAB
     Indication: Neoplasm malignant
     Route: 042
     Dates: start: 20221107
  22. SULFAMETHOXAZOLE\TRIMETHOPRIM [Concomitant]
     Active Substance: SULFAMETHOXAZOLE\TRIMETHOPRIM
     Indication: Product used for unknown indication
     Route: 065
     Dates: start: 20221107
  23. TAFASITAMAB [Concomitant]
     Active Substance: TAFASITAMAB
     Indication: Neoplasm malignant
     Route: 065
     Dates: start: 20221107
  24. VINCRISTINE [Concomitant]
     Active Substance: VINCRISTINE
     Indication: Neoplasm malignant
     Route: 042
     Dates: start: 20221107

REACTIONS (4)
  - Febrile neutropenia [Recovered/Resolved]
  - Inflammation [Recovered/Resolved]
  - Pyrexia [Recovered/Resolved]
  - Off label use [Unknown]

NARRATIVE: CASE EVENT DATE: 20221116
